FAERS Safety Report 7554603-6 (Version None)
Quarter: 2011Q2

REPORT INFORMATION
  Report Type: 
  Country: None (occurrence: None)
  Receive Date: 20110617
  Receipt Date: 20110607
  Transmission Date: 20111010
  Serious: Yes (Hospitalization)
  Sender: FDA-Public Use
  Company Number: US-ROCHE-782676

PATIENT
  Sex: Female

DRUGS (3)
  1. CARBOPLATIN [Suspect]
     Dosage: CYCLE 3 WKS PHASE A (CYCLE 1-6) AUC 6 IV ON DAY 1. LAST DOSE : 20 JAN 2011.
     Route: 042
     Dates: start: 20101201
  2. PACLITAXEL [Suspect]
     Dosage: CYCLE 3 WKS PHASE A (CYCLE1-6) 80 MG/M2 IV OVER 1 HR ON DAYS 1, 8 AND 15.LAST DOSE : 20 JAN 2011.
     Route: 042
     Dates: start: 20101201
  3. BEVACIZUMAB [Suspect]
     Dosage: 15 MG/KG IV OVER 30-90 MIN ON D-1 BEGINNING WITH CYCLE 2,PHASE B(CYCLE 7-22)15 MG/KG IV 30-90 MIN D1
     Route: 042

REACTIONS (3)
  - INFECTION [None]
  - GASTROINTESTINAL DISORDER [None]
  - URINARY TRACT INFECTION [None]
